FAERS Safety Report 18123531 (Version 2)
Quarter: 2020Q3

REPORT INFORMATION
  Report Type: Spontaneous
  Country: US (occurrence: US)
  Receive Date: 20200807
  Receipt Date: 20200923
  Transmission Date: 20201103
  Serious: No
  Sender: FDA-Public Use
  Company Number: US-ASTRAZENECA-2020SE92906

PATIENT
  Sex: Female
  Weight: 147.9 kg

DRUGS (15)
  1. BYDUREON BCISE [Suspect]
     Active Substance: EXENATIDE
     Indication: LABORATORY TEST ABNORMAL
     Route: 058
     Dates: start: 20200719
  2. DICYCLOMINE [Concomitant]
     Active Substance: DICYCLOMINE HYDROCHLORIDE
     Indication: ABDOMINAL DISCOMFORT
  3. FUROSEMIDE. [Concomitant]
     Active Substance: FUROSEMIDE
  4. METOLAZONE. [Concomitant]
     Active Substance: METOLAZONE
  5. TYLENOL WITH CODEINE [Concomitant]
     Active Substance: ACETAMINOPHEN\CODEINE PHOSPHATE
  6. ONDANSETRON [Concomitant]
     Active Substance: ONDANSETRON
     Indication: NAUSEA
  7. PRAMPEXOLE [Concomitant]
  8. PREGABALIN. [Concomitant]
     Active Substance: PREGABALIN
  9. JANUVIA [Concomitant]
     Active Substance: SITAGLIPTIN PHOSPHATE
  10. BUSPIRONE [Concomitant]
     Active Substance: BUSPIRONE HYDROCHLORIDE
  11. DILTIAZEM. [Concomitant]
     Active Substance: DILTIAZEM
  12. TRAZODONE [Concomitant]
     Active Substance: TRAZODONE HYDROCHLORIDE
     Indication: HEREDITARY SPHEROCYTOSIS
  13. DEXILANT [Concomitant]
     Active Substance: DEXLANSOPRAZOLE
  14. MONTELUKAST [Concomitant]
     Active Substance: MONTELUKAST SODIUM
  15. SERTRALINE [Concomitant]
     Active Substance: SERTRALINE HYDROCHLORIDE

REACTIONS (5)
  - Injection site pain [Unknown]
  - Blood glucose increased [Unknown]
  - Device mechanical issue [Unknown]
  - Injection site bruising [Unknown]
  - Wrong technique in device usage process [Unknown]
